FAERS Safety Report 23622736 (Version 1)
Quarter: 2024Q1

REPORT INFORMATION
  Report Type: Spontaneous
  Country: FR (occurrence: FR)
  Receive Date: 20240312
  Receipt Date: 20240312
  Transmission Date: 20240410
  Serious: Yes (Hospitalization, Other)
  Sender: FDA-Public Use
  Company Number: FR-CELLTRION INC.-2024FR005568

PATIENT

DRUGS (8)
  1. RITUXIMAB [Suspect]
     Active Substance: RITUXIMAB
     Indication: Diffuse large B-cell lymphoma stage II
     Dosage: SIX 21-DAY CYCLES
     Route: 065
     Dates: start: 201212
  2. RITUXIMAB [Suspect]
     Active Substance: RITUXIMAB
     Dosage: 4 WEEKS, CONSOLIDATION TREATMENT
     Route: 065
     Dates: end: 201303
  3. BLEOMYCIN [Suspect]
     Active Substance: BLEOMYCIN SULFATE
     Indication: Diffuse large B-cell lymphoma stage II
     Dosage: AS A PART OF PMITCEBO REGIMEN
     Route: 065
     Dates: start: 201212
  4. CYCLOPHOSPHAMIDE [Suspect]
     Active Substance: CYCLOPHOSPHAMIDE
     Indication: Diffuse large B-cell lymphoma stage II
     Dosage: AS A PART OF PMITCEBO REGIMEN
     Route: 065
     Dates: start: 201212
  5. MITOXANTRONE [Suspect]
     Active Substance: MITOXANTRONE HYDROCHLORIDE
     Indication: Diffuse large B-cell lymphoma stage II
     Dosage: AS A PART OF PMITCEBO REGIMEN
     Route: 065
     Dates: start: 201212
  6. METHYLPREDNISOLONE [Suspect]
     Active Substance: METHYLPREDNISOLONE
     Indication: Diffuse large B-cell lymphoma stage II
     Dosage: AS A PART OF PMITCEBO REGIMEN
     Route: 065
     Dates: start: 201212
  7. ETOPOSIDE [Suspect]
     Active Substance: ETOPOSIDE
     Indication: Diffuse large B-cell lymphoma stage II
     Dosage: AS A PART OF PMITCEBO REGIMEN
     Route: 065
     Dates: start: 201212
  8. VINCRISTINE [Suspect]
     Active Substance: VINCRISTINE
     Indication: Diffuse large B-cell lymphoma stage II
     Dosage: AS A PART OF PMITCEBO REGIMEN
     Route: 065
     Dates: start: 201212

REACTIONS (4)
  - B precursor type acute leukaemia [Recovering/Resolving]
  - Normocytic anaemia [Unknown]
  - Fall [Unknown]
  - Thrombocytopenia [Unknown]

NARRATIVE: CASE EVENT DATE: 20130101
